FAERS Safety Report 23765982 (Version 2)
Quarter: 2024Q2

REPORT INFORMATION
  Report Type: Spontaneous
  Country: US (occurrence: US)
  Receive Date: 20240421
  Receipt Date: 20240605
  Transmission Date: 20240716
  Serious: No
  Sender: FDA-Public Use
  Company Number: US-Blueprint Medicines Corporation-3199

PATIENT
  Sex: Male

DRUGS (2)
  1. AYVAKIT [Suspect]
     Active Substance: AVAPRITINIB
     Indication: Malignant connective tissue neoplasm
     Route: 065
     Dates: start: 20230525
  2. AYVAKIT [Suspect]
     Active Substance: AVAPRITINIB
     Indication: Soft tissue sarcoma
     Route: 065
     Dates: start: 20230525

REACTIONS (4)
  - Hypersomnia [Unknown]
  - Blood glucose increased [Unknown]
  - Peripheral swelling [Unknown]
  - Epistaxis [Unknown]
